FAERS Safety Report 9959688 (Version 1)
Quarter: 2014Q1

REPORT INFORMATION
  Report Type: Spontaneous
  Country: US (occurrence: US)
  Receive Date: 20140305
  Receipt Date: 20140305
  Transmission Date: 20141002
  Serious: No
  Sender: FDA-Public Use
  Company Number: US-ABBVIE-13P-163-1101234-00

PATIENT
  Age: 23 Year
  Sex: Female
  Weight: 95.34 kg

DRUGS (2)
  1. HUMIRA [Suspect]
     Indication: CROHN^S DISEASE
     Dates: start: 201106, end: 201107
  2. UNKNOWN MEDICATION [Suspect]
     Indication: PRODUCT USED FOR UNKNOWN INDICATION
     Dates: start: 201106, end: 201107

REACTIONS (5)
  - Sensory disturbance [Recovered/Resolved]
  - Feeling abnormal [Recovered/Resolved]
  - Dreamy state [Recovered/Resolved]
  - Muscle spasms [Recovering/Resolving]
  - Diarrhoea [Recovering/Resolving]
